FAERS Safety Report 6912612-1 (Version None)
Quarter: 2010Q3

REPORT INFORMATION
  Report Type: 
  Country: None (occurrence: None)
  Receive Date: 20100806
  Receipt Date: 20080904
  Transmission Date: 20110219
  Serious: No
  Sender: FDA-Public Use
  Company Number: US-PFIZER INC-2008056639

PATIENT
  Sex: Female
  Weight: 44 kg

DRUGS (5)
  1. VFEND [Suspect]
     Indication: COCCIDIOIDOMYCOSIS
     Route: 048
     Dates: start: 20080601, end: 20080731
  2. FLUCONAZOLE [Suspect]
     Dosage: DAILY: EVERYDAY
     Route: 048
     Dates: start: 20080801
  3. ITRACONAZOLE [Suspect]
     Dosage: BID: EVERYDAY
     Route: 048
     Dates: end: 20080101
  4. VITAMIN TAB [Concomitant]
  5. ASPIRIN [Concomitant]
     Route: 048

REACTIONS (11)
  - COUGH [None]
  - DRUG INEFFECTIVE [None]
  - HYPERHIDROSIS [None]
  - HYPOAESTHESIA [None]
  - MYALGIA [None]
  - OEDEMA PERIPHERAL [None]
  - PARAESTHESIA [None]
  - RASH [None]
  - SKIN DISORDER [None]
  - VISUAL IMPAIRMENT [None]
  - WEIGHT DECREASED [None]
